FAERS Safety Report 4487771-3 (Version None)
Quarter: 2004Q4

REPORT INFORMATION
  Report Type: 
  Country: None (occurrence: None)
  Receive Date: 20041025
  Receipt Date: 20040723
  Transmission Date: 20050328
  Serious: No
  Sender: FDA-Public Use
  Company Number: 9056

PATIENT
  Age: 65 Year
  Sex: Male

DRUGS (2)
  1. METHOTREXATE [Suspect]
  2. LEFLUNOMIDE [Suspect]

REACTIONS (2)
  - DRUG INTERACTION [None]
  - PANCYTOPENIA [None]
